FAERS Safety Report 13465605 (Version 1)
Quarter: 2017Q2

REPORT INFORMATION
  Report Type: Spontaneous
  Country: US (occurrence: US)
  Receive Date: 20170420
  Receipt Date: 20170420
  Transmission Date: 20170830
  Serious: Yes (Other)
  Sender: FDA-Public Use
  Company Number: None

PATIENT
  Age: 56 Year
  Sex: Female

DRUGS (1)
  1. CAPECITABINE 500MG ACCORD [Suspect]
     Active Substance: CAPECITABINE
     Indication: BREAST CANCER FEMALE
     Dosage: 1500MG/2000MG QAM/QPM PO
     Route: 048
     Dates: start: 20160825

REACTIONS (2)
  - Ulcerative keratitis [None]
  - Keratitis [None]

NARRATIVE: CASE EVENT DATE: 20170315
